FAERS Safety Report 6370931-4 (Version None)
Quarter: 2009Q3

REPORT INFORMATION
  Report Type: 
  Country: None (occurrence: None)
  Receive Date: 20090923
  Receipt Date: 20071206
  Transmission Date: 20100115
  Serious: No
  Sender: FDA-Public Use
  Company Number: US-ASTRAZENECA-2006UW22354

PATIENT
  Age: 54 Year
  Sex: Female
  Weight: 88.9 kg

DRUGS (38)
  1. SEROQUEL [Suspect]
     Indication: SLEEP DISORDER
     Route: 048
     Dates: start: 20030101
  2. SEROQUEL [Suspect]
     Indication: ANXIETY
     Route: 048
     Dates: start: 20030101
  3. SEROQUEL [Suspect]
     Indication: DEPRESSION
     Route: 048
     Dates: start: 20030101
  4. SEROQUEL [Suspect]
     Indication: SCHIZOPHRENIA
     Route: 048
     Dates: start: 20030101
  5. SEROQUEL [Suspect]
     Dosage: 100-900 MG
     Route: 048
     Dates: start: 20041024
  6. SEROQUEL [Suspect]
     Dosage: 100-900 MG
     Route: 048
     Dates: start: 20041024
  7. SEROQUEL [Suspect]
     Dosage: 100-900 MG
     Route: 048
     Dates: start: 20041024
  8. SEROQUEL [Suspect]
     Dosage: 100-900 MG
     Route: 048
     Dates: start: 20041024
  9. RISPERDAL [Concomitant]
  10. ZOCOR [Concomitant]
  11. ATIVAN [Concomitant]
  12. GEODON [Concomitant]
  13. ZYPREXA [Concomitant]
  14. HALDOL [Concomitant]
  15. TENORMIN [Concomitant]
  16. KLONOPIN [Concomitant]
  17. VOLTAREN [Concomitant]
  18. VASOTEC [Concomitant]
  19. NEURONTIN [Concomitant]
  20. GLUCOTROL XL [Concomitant]
  21. HYDROCHLOROTHIAZIDE [Concomitant]
  22. METHOTREXATE SODIUM [Concomitant]
  23. PROTONIX [Concomitant]
  24. EFFEXOR XR [Concomitant]
  25. TYLENOL (CAPLET) [Concomitant]
  26. MAALOX PLUS SYRUP [Concomitant]
  27. CHLORASEPTIC [Concomitant]
  28. SENOKOT [Concomitant]
  29. ESTRADIOL [Concomitant]
  30. IMITREX [Concomitant]
  31. ENALAPRIL MALEATE [Concomitant]
  32. CYMBALTA [Concomitant]
  33. LISINOPRIL [Concomitant]
  34. OXYCODONE [Concomitant]
  35. HYDROCODONE [Concomitant]
  36. NEXIUM [Concomitant]
  37. PREDNISOLONE [Concomitant]
  38. DESURE [Concomitant]

REACTIONS (5)
  - CHOLELITHIASIS [None]
  - DIABETES MELLITUS [None]
  - DIABETES MELLITUS INADEQUATE CONTROL [None]
  - HYPERGLYCAEMIA [None]
  - POST CHOLECYSTECTOMY SYNDROME [None]
